FAERS Safety Report 5850869-9 (Version None)
Quarter: 2008Q3

REPORT INFORMATION
  Report Type: 
  Country: None (occurrence: None)
  Receive Date: 20080819
  Receipt Date: 20080819
  Transmission Date: 20090109
  Serious: Yes (Other)
  Sender: FDA-Public Use
  Company Number: None

PATIENT
  Age: 44 Year
  Sex: Female
  Weight: 72.5755 kg

DRUGS (4)
  1. FLUOROURACIL [Suspect]
     Indication: ACTINIC KERATOSIS
     Dosage: APPLY TO AFFECTED AREAS TWICE DAILY TOP
     Route: 061
  2. DARVOCET [Concomitant]
  3. MOTRIN [Concomitant]
  4. TYLENOL (CAPLET) [Concomitant]

REACTIONS (9)
  - ABDOMINAL PAIN [None]
  - APPLICATION SITE IRRITATION [None]
  - APPLICATION SITE PRURITUS [None]
  - CHROMATURIA [None]
  - DYSPEPSIA [None]
  - FAECES PALE [None]
  - LIMB OPERATION [None]
  - PAIN IN EXTREMITY [None]
  - PRURITUS [None]
